FAERS Safety Report 12078940 (Version 1)
Quarter: 2016Q1

REPORT INFORMATION
  Report Type: Spontaneous
  Country: US (occurrence: US)
  Receive Date: 20160216
  Receipt Date: 20160216
  Transmission Date: 20160526
  Serious: No
  Sender: FDA-Public Use
  Company Number: US-ACCORD-037077

PATIENT
  Age: 73 Year
  Sex: Male
  Weight: 75 kg

DRUGS (1)
  1. LISINOPRIL ACCORD [Suspect]
     Active Substance: LISINOPRIL
     Indication: CARDIAC DISORDER
     Dosage: STRENGTH: 2.5 MG
     Route: 048
     Dates: start: 201512

REACTIONS (2)
  - Product substitution issue [Unknown]
  - Dyspepsia [Not Recovered/Not Resolved]

NARRATIVE: CASE EVENT DATE: 201512
